FAERS Safety Report 24306496 (Version 2)
Quarter: 2024Q3

REPORT INFORMATION
  Report Type: Report from Study
  Country: US (occurrence: US)
  Receive Date: 20240911
  Receipt Date: 20240918
  Transmission Date: 20241016
  Serious: Yes (Other)
  Sender: GLAXOSMITHKLINE
  Company Number: US-GLAXOSMITHKLINE-US2023065559

PATIENT

DRUGS (20)
  1. NIRAPARIB [Suspect]
     Active Substance: NIRAPARIB
     Indication: Ovarian cancer
     Dosage: 200 MG, QD,HS AT 9PM WITH FOOD
     Route: 048
     Dates: start: 20230501, end: 20230518
  2. NIRAPARIB [Suspect]
     Active Substance: NIRAPARIB
     Dosage: 100 MG, QD
     Route: 048
     Dates: start: 20230625
  3. NIRAPARIB [Suspect]
     Active Substance: NIRAPARIB
     Dosage: 100 MG, QD
     Route: 048
  4. NIRAPARIB [Suspect]
     Active Substance: NIRAPARIB
     Indication: Ovarian cancer
     Dosage: 100 MG, QD
     Route: 048
  5. NIRAPARIB [Suspect]
     Active Substance: NIRAPARIB
     Dosage: 100 MG, QD
     Route: 048
  6. NIRAPARIB [Suspect]
     Active Substance: NIRAPARIB
     Dosage: 100 MG, QD
     Route: 048
  7. NIRAPARIB [Suspect]
     Active Substance: NIRAPARIB
     Dosage: 100 MG, QD
     Route: 048
     Dates: end: 20240830
  8. NIRAPARIB [Suspect]
     Active Substance: NIRAPARIB
     Dosage: 100 MG, QD
     Route: 048
     Dates: start: 20230501
  9. ACETAMINOPHEN\HYDROCODONE [Concomitant]
     Active Substance: ACETAMINOPHEN\HYDROCODONE
     Indication: Product used for unknown indication
     Dosage: UNK  (7.5-325MG PRN)
  10. LEVOTHYROXINE SODIUM [Concomitant]
     Active Substance: LEVOTHYROXINE SODIUM
     Indication: Product used for unknown indication
     Dosage: 125 UG, QD
  11. ONDANSETRON [Concomitant]
     Active Substance: ONDANSETRON
     Indication: Product used for unknown indication
     Dosage: UNK (4MG AND 8MG PRN)
  12. LIPITOR [Concomitant]
     Active Substance: ATORVASTATIN CALCIUM
     Indication: Product used for unknown indication
     Dosage: 80 MG, QD
  13. LEVOTHYROXINE [Concomitant]
     Active Substance: LEVOTHYROXINE\LEVOTHYROXINE SODIUM
     Indication: Product used for unknown indication
     Dosage: 125 MCG/MG, QD
  14. LEXAPRO [Concomitant]
     Active Substance: ESCITALOPRAM OXALATE
     Indication: Product used for unknown indication
     Dosage: 10 MG, QD
  15. ELIQUIS [Concomitant]
     Active Substance: APIXABAN
     Indication: Product used for unknown indication
     Dosage: 2.5 MG, BID
  16. VITAMIN D3 [Concomitant]
     Active Substance: CHOLECALCIFEROL
     Indication: Product used for unknown indication
     Dosage: 25 MCG/MG, QD
  17. CITALOPRAM [Concomitant]
     Active Substance: CITALOPRAM\CITALOPRAM HYDROBROMIDE
     Indication: Product used for unknown indication
     Dosage: 10 MG
  18. STOOL SOFTENER (DOCUSATE) [Concomitant]
     Active Substance: DOCUSATE
     Indication: Product used for unknown indication
     Dosage: UNK
  19. BENADRYL [Concomitant]
     Active Substance: DIPHENHYDRAMINE HYDROCHLORIDE
     Indication: Product used for unknown indication
     Dosage: 25 MG PRN
  20. OMEPRAZOLE [Concomitant]
     Active Substance: OMEPRAZOLE
     Indication: Product used for unknown indication
     Dosage: UNK

REACTIONS (38)
  - Neuropathy peripheral [Not Recovered/Not Resolved]
  - Colon cancer [Unknown]
  - Malignant neoplasm progression [Not Recovered/Not Resolved]
  - Diarrhoea [Recovered/Resolved]
  - Flatulence [Not Recovered/Not Resolved]
  - Eye disorder [Not Recovered/Not Resolved]
  - Vitreous floaters [Recovered/Resolved]
  - Vision blurred [Recovered/Resolved]
  - Visual impairment [Recovered/Resolved]
  - Decreased appetite [Recovering/Resolving]
  - Vomiting [Recovered/Resolved]
  - Headache [Recovered/Resolved]
  - Eyelid margin crusting [Unknown]
  - Dry eye [Unknown]
  - Lacrimation increased [Unknown]
  - Stress [Unknown]
  - White blood cell count increased [Unknown]
  - Erythema [Unknown]
  - Sleep disorder [Not Recovered/Not Resolved]
  - Heart rate increased [Not Recovered/Not Resolved]
  - Dizziness [Not Recovered/Not Resolved]
  - Fatigue [Not Recovered/Not Resolved]
  - Skin disorder [Not Recovered/Not Resolved]
  - Hyperventilation [Not Recovered/Not Resolved]
  - Speech disorder [Not Recovered/Not Resolved]
  - Limb injury [Recovered/Resolved]
  - Anxiety [Not Recovered/Not Resolved]
  - Eye infection [Recovered/Resolved]
  - Muscle spasms [Recovered/Resolved]
  - Asthenia [Unknown]
  - Chapped lips [Not Recovered/Not Resolved]
  - Acrochordon [Not Recovered/Not Resolved]
  - Increased tendency to bruise [Not Recovered/Not Resolved]
  - Peripheral coldness [Not Recovered/Not Resolved]
  - Nail bed disorder [Not Recovered/Not Resolved]
  - Contusion [Not Recovered/Not Resolved]
  - Product dose omission issue [Unknown]
  - Drug monitoring procedure not performed [Unknown]

NARRATIVE: CASE EVENT DATE: 20230504
